FAERS Safety Report 9558641 (Version 1)
Quarter: 2013Q3

REPORT INFORMATION
  Report Type: Spontaneous
  Country: US (occurrence: US)
  Receive Date: 20130926
  Receipt Date: 20130926
  Transmission Date: 20140515
  Serious: No
  Sender: FDA-Public Use
  Company Number: US-BIOGENIDEC-2013BI045141

PATIENT
  Age: 60 Year
  Sex: Female

DRUGS (8)
  1. TECFIDERA [Suspect]
     Indication: PRODUCT USED FOR UNKNOWN INDICATION
     Route: 048
     Dates: start: 20130424, end: 20130501
  2. TECFIDERA [Suspect]
     Indication: PRODUCT USED FOR UNKNOWN INDICATION
     Route: 048
     Dates: start: 20130501
  3. GABAPENTIN [Concomitant]
  4. OXYCODONE [Concomitant]
  5. XANAX [Concomitant]
  6. NAPROXEN [Concomitant]
  7. FLEXERIL [Concomitant]
  8. BACLOFEN [Concomitant]

REACTIONS (2)
  - Abdominal discomfort [Unknown]
  - Constipation [Unknown]
